FAERS Safety Report 8113178-3 (Version None)
Quarter: 2012Q1

REPORT INFORMATION
  Report Type: 
  Country: None (occurrence: None)
  Receive Date: 20120131
  Receipt Date: 20120117
  Transmission Date: 20120608
  Serious: Yes (Hospitalization)
  Sender: FDA-Public Use
  Company Number: LTI2012A00018

PATIENT
  Age: 63 Year
  Sex: Male

DRUGS (4)
  1. ISOPTIN [Concomitant]
  2. ACTOS [Suspect]
     Indication: TYPE 2 DIABETES MELLITUS
     Dosage: 15 MG (15 MG, 1
     Route: 048
     Dates: start: 20100503
  3. TEDRALAN (THEOPHYLLINE) [Concomitant]
  4. PIOGLITAZONE HYDROCHLORIDE/METFORMIN HYDROCHLORIDE [Suspect]
     Indication: TYPE 2 DIABETES MELLITUS
     Dosage: ACTOS 15MG (PIOGLITAZONE HYDROCHLORIDE, METFORMIN) 2 DF (1 DF, 1 IN 1 D)
     Route: 048
     Dates: start: 20080221

REACTIONS (1)
  - BLADDER TRANSITIONAL CELL CARCINOMA STAGE II [None]
